FAERS Safety Report 19408503 (Version 1)
Quarter: 2021Q2

REPORT INFORMATION
  Report Type: Spontaneous
  Country: CZ (occurrence: CZ)
  Receive Date: 20210612
  Receipt Date: 20210612
  Transmission Date: 20210717
  Serious: Yes (Hospitalization, Other)
  Sender: FDA-Public Use
  Company Number: CZ-AUROBINDO-AUR-APL-2019-090421

PATIENT
  Age: 75 Year
  Sex: Female

DRUGS (2)
  1. ASPIRIN. [Concomitant]
     Active Substance: ASPIRIN
     Indication: ANTIPLATELET THERAPY
     Dosage: 600 MILLIGRAM
     Route: 065
  2. CLOPIDOGREL [Suspect]
     Active Substance: CLOPIDOGREL BISULFATE
     Indication: ANTIPLATELET THERAPY
     Dosage: 75 MILLIGRAM, DAILY
     Route: 065

REACTIONS (8)
  - Erythropenia [Recovered/Resolved]
  - Leukopenia [Recovered/Resolved]
  - Fatigue [Recovered/Resolved]
  - C-reactive protein increased [Recovered/Resolved]
  - Anaemia [Recovered/Resolved]
  - Myelodysplastic syndrome [Recovered/Resolved]
  - Dyspnoea [Recovered/Resolved]
  - Pyrexia [Recovered/Resolved]
